FAERS Safety Report 5312057-4 (Version None)
Quarter: 2007Q2

REPORT INFORMATION
  Report Type: 
  Country: None (occurrence: None)
  Receive Date: 20070430
  Receipt Date: 20060821
  Transmission Date: 20071010
  Serious: No
  Sender: FDA-Public Use
  Company Number: 2006UW16535

PATIENT
  Age: 76 Year
  Sex: Male
  Weight: 69.4 kg

DRUGS (3)
  1. NEXIUM [Suspect]
     Indication: ULCER
     Route: 048
     Dates: start: 20060801
  2. NEXIUM [Suspect]
     Indication: STOMACH DISCOMFORT
     Route: 048
     Dates: start: 20060801
  3. QUINAPRIL [Concomitant]

REACTIONS (1)
  - HAEMATOCHEZIA [None]
